FAERS Safety Report 7585122-9 (Version None)
Quarter: 2011Q3

REPORT INFORMATION
  Report Type: 
  Country: None (occurrence: None)
  Receive Date: 20110701
  Receipt Date: 20110623
  Transmission Date: 20111222
  Serious: Yes (Hospitalization)
  Sender: FDA-Public Use
  Company Number: US-BIOGENIDEC-2011BI019019

PATIENT
  Age: 36 Year
  Sex: Female

DRUGS (2)
  1. TYSABRI [Suspect]
     Indication: MULTIPLE SCLEROSIS
     Route: 042
     Dates: start: 20090923, end: 20100907
  2. TYSABRI [Suspect]
     Route: 042
     Dates: start: 20110520, end: 20110520

REACTIONS (3)
  - MULTIPLE SCLEROSIS RELAPSE [None]
  - CONVULSION [None]
  - FALL [None]
